FAERS Safety Report 7225385-2 (Version None)
Quarter: 2011Q1

REPORT INFORMATION
  Report Type: 
  Country: None (occurrence: None)
  Receive Date: 20110113
  Receipt Date: 20110104
  Transmission Date: 20110831
  Serious: Yes (Hospitalization)
  Sender: FDA-Public Use
  Company Number: FR-ASTRAZENECA-2011SE01163

PATIENT
  Sex: Male

DRUGS (15)
  1. ELISOR [Concomitant]
  2. BACTRIM [Suspect]
     Route: 048
     Dates: start: 20100101
  3. NEORAL [Concomitant]
  4. VENTOLIN [Concomitant]
     Dosage: AS REQUIRED
  5. NEXIUM [Suspect]
     Route: 048
  6. AMLOR [Concomitant]
  7. TARDYFERON [Concomitant]
  8. ASPIRIN [Concomitant]
  9. CORTANCYL [Concomitant]
  10. SERETIDE DISKUS [Concomitant]
     Dosage: 1 INH BID
  11. SODIUM BICARBONATE [Concomitant]
  12. EUPRESSYL [Concomitant]
  13. SECTRAL [Concomitant]
  14. SPECIAFOLDINE [Concomitant]
  15. MYFORTIC [Concomitant]

REACTIONS (7)
  - DYSPNOEA [None]
  - GAMMA-GLUTAMYLTRANSFERASE INCREASED [None]
  - CYTOLYTIC HEPATITIS [None]
  - THROMBOCYTOPENIA [None]
  - OEDEMA [None]
  - LEUKOPENIA [None]
  - ANAEMIA [None]
